FAERS Safety Report 25346036 (Version 3)
Quarter: 2025Q2

REPORT INFORMATION
  Report Type: Spontaneous
  Country: US (occurrence: US)
  Receive Date: 20250522
  Receipt Date: 20250630
  Transmission Date: 20250716
  Serious: Yes (Death, Hospitalization, Other)
  Sender: CSL BEHRING
  Company Number: US-BEH-2025205425

PATIENT
  Age: 60 Year
  Sex: Female

DRUGS (1)
  1. PRIVIGEN [Suspect]
     Active Substance: HUMAN IMMUNOGLOBULIN G
     Indication: Chronic inflammatory demyelinating polyradiculoneuropathy
     Route: 042
     Dates: start: 20190419

REACTIONS (3)
  - Cerebral haemorrhage [Fatal]
  - Platelet count decreased [Fatal]
  - Fall [Fatal]

NARRATIVE: CASE EVENT DATE: 20250509
